FAERS Safety Report 12136710 (Version 3)
Quarter: 2016Q2

REPORT INFORMATION
  Report Type: Spontaneous
  Country: ZA (occurrence: ZA)
  Receive Date: 20160302
  Receipt Date: 20160405
  Transmission Date: 20160815
  Serious: Yes (Life-Threatening)
  Sender: FDA-Public Use
  Company Number: ALCN2016ZA001540

PATIENT
  Age: 58 Year
  Sex: Male

DRUGS (3)
  1. INSULIN [Concomitant]
     Active Substance: INSULIN NOS
     Indication: PRODUCT USED FOR UNKNOWN INDICATION
     Dosage: UNK
     Route: 065
  2. SYSTANE BALANCE [Suspect]
     Active Substance: PROPYLENE GLYCOL
     Indication: DRY EYE
  3. SYSTANE BALANCE [Suspect]
     Active Substance: PROPYLENE GLYCOL
     Indication: MEIBOMIAN GLAND DYSFUNCTION
     Dosage: 1 DF, TID
     Route: 047
     Dates: start: 20160215

REACTIONS (14)
  - Angioedema [Unknown]
  - Laryngeal oedema [Unknown]
  - Dyspnoea [Unknown]
  - Stridor [Unknown]
  - Dysphonia [Unknown]
  - Drug ineffective [Unknown]
  - Anaphylactic reaction [Unknown]
  - Erythema [Unknown]
  - Pruritus [Unknown]
  - Respiratory failure [Unknown]
  - Bronchospasm [Unknown]
  - Urticaria [Unknown]
  - Wheezing [Unknown]
  - Dysphagia [Unknown]

NARRATIVE: CASE EVENT DATE: 20160216
